FAERS Safety Report 9703721 (Version 1)
Quarter: 2013Q4

REPORT INFORMATION
  Report Type: Spontaneous
  Country: CH (occurrence: CH)
  Receive Date: 20131122
  Receipt Date: 20131122
  Transmission Date: 20140711
  Serious: Yes (Life-Threatening, Hospitalization)
  Sender: FDA-Public Use
  Company Number: CH-ELI_LILLY_AND_COMPANY-CH201311004784

PATIENT
  Age: 45 Year
  Sex: Male

DRUGS (7)
  1. ZYPREXA [Suspect]
     Indication: AGITATION
     Dosage: 20 MG, QD
     Route: 048
  2. VALIUM [Interacting]
     Indication: AGITATION
     Dosage: 5 MG, BID
     Route: 048
     Dates: start: 20130828, end: 20130828
  3. TEMESTA [Interacting]
     Indication: AGITATION
     Dosage: 2.5 MG, QD
     Route: 048
     Dates: start: 20130828, end: 20130828
  4. CLOPIXOL [Interacting]
     Indication: AGITATION
     Dosage: 10 MG, BID
     Route: 048
     Dates: start: 20130828, end: 20130828
  5. MIDAZOLAM [Suspect]
     Indication: PRODUCT USED FOR UNKNOWN INDICATION
     Dosage: UNK, UNKNOWN
     Route: 065
  6. PRIADEL [Concomitant]
     Dosage: 400 MG, TID
     Route: 048
  7. INDERAL [Concomitant]
     Dosage: 10 MG, QD
     Route: 048
     Dates: end: 20130828

REACTIONS (18)
  - Respiratory failure [Recovered/Resolved]
  - Altered state of consciousness [Recovered/Resolved]
  - Pneumonia aspiration [Recovering/Resolving]
  - Agitation [Unknown]
  - Dyspnoea [Unknown]
  - Oxygen saturation decreased [Unknown]
  - Coma [Unknown]
  - Aspiration bronchial [Unknown]
  - Sedation [Unknown]
  - C-reactive protein increased [Unknown]
  - Thrombophlebitis septic [Unknown]
  - Increased bronchial secretion [Unknown]
  - Oedema [Unknown]
  - Psychomotor hyperactivity [Unknown]
  - Psychotic disorder [Unknown]
  - Drug abuse [Unknown]
  - Hyperhidrosis [Unknown]
  - Drug interaction [Unknown]
